FAERS Safety Report 19947437 (Version 3)
Quarter: 2022Q2

REPORT INFORMATION
  Report Type: Spontaneous
  Country: US (occurrence: US)
  Receive Date: 20211012
  Receipt Date: 20220504
  Transmission Date: 20220721
  Serious: Yes (Other)
  Sender: FDA-Public Use
  Company Number: US-GILEAD-2021-0551913

PATIENT
  Age: 37 Year
  Sex: Male
  Weight: 92.517 kg

DRUGS (28)
  1. ATRIPLA [Suspect]
     Active Substance: EFAVIRENZ\EMTRICITABINE\TENOFOVIR DISOPROXIL FUMARATE
     Indication: HIV infection
     Dosage: UNK
     Route: 048
     Dates: start: 200608, end: 200905
  2. TRUVADA [Suspect]
     Active Substance: EMTRICITABINE\TENOFOVIR DISOPROXIL FUMARATE
     Indication: HIV infection
     Dosage: UNK
     Route: 048
     Dates: start: 200604, end: 201006
  3. COMPLERA [Suspect]
     Active Substance: EMTRICITABINE\RILPIVIRINE HYDROCHLORIDE\TENOFOVIR DISOPROXIL FUMARATE
     Indication: HIV infection
     Dosage: UNK
     Route: 065
     Dates: start: 201210, end: 201305
  4. VIREAD [Suspect]
     Active Substance: TENOFOVIR DISOPROXIL FUMARATE
     Indication: HIV infection
     Dosage: UNK
     Route: 065
     Dates: start: 201306, end: 201308
  5. COMBIVIR [Concomitant]
     Active Substance: LAMIVUDINE\ZIDOVUDINE
  6. EDURANT [Concomitant]
     Active Substance: RILPIVIRINE HYDROCHLORIDE
  7. EMTRIVA [Concomitant]
     Active Substance: EMTRICITABINE
  8. EPZICOM [Concomitant]
     Active Substance: ABACAVIR SULFATE\LAMIVUDINE
  9. ISENTRESS [Concomitant]
     Active Substance: RALTEGRAVIR POTASSIUM
  10. SUSTIVA [Concomitant]
     Active Substance: EFAVIRENZ
  11. VIRACEPT [Concomitant]
     Active Substance: NELFINAVIR MESYLATE
  12. SEROQUEL [Concomitant]
     Active Substance: QUETIAPINE FUMARATE
  13. AMLODIPINE [Concomitant]
     Active Substance: AMLODIPINE BESYLATE
  14. CLONAZEPAM [Concomitant]
     Active Substance: CLONAZEPAM
  15. DOCUSATE SODIUM [Concomitant]
     Active Substance: DOCUSATE SODIUM
  16. LACTOBACILLUS ACIDOPHILUS [Concomitant]
     Active Substance: LACTOBACILLUS ACIDOPHILUS
  17. LAMOTRIGINE [Concomitant]
     Active Substance: LAMOTRIGINE
  18. LEVOTHYROXINE [Concomitant]
     Active Substance: LEVOTHYROXINE
  19. MIRTAZAPINE [Concomitant]
     Active Substance: MIRTAZAPINE
  20. HERBALS\PLANTAGO OVATA SEED COAT [Concomitant]
     Active Substance: HERBALS\PLANTAGO OVATA SEED COAT
  21. CIALIS [Concomitant]
     Active Substance: TADALAFIL
  22. VALACYCLOVIR HYDROCHLORIDE [Concomitant]
     Active Substance: VALACYCLOVIR HYDROCHLORIDE
  23. VALCYTE [Concomitant]
     Active Substance: VALGANCICLOVIR HYDROCHLORIDE
  24. NORTRIPTYLINE [Concomitant]
     Active Substance: NORTRIPTYLINE
  25. LITHIUM [Concomitant]
     Active Substance: LITHIUM
  26. LEXAPRO [Concomitant]
     Active Substance: ESCITALOPRAM OXALATE
  27. GEMFIBROZIL [Concomitant]
     Active Substance: GEMFIBROZIL
  28. CELECOXIB [Concomitant]
     Active Substance: CELECOXIB

REACTIONS (9)
  - Chronic kidney disease [Not Recovered/Not Resolved]
  - Renal impairment [Unknown]
  - Renal failure [Not Recovered/Not Resolved]
  - Blood creatinine increased [Unknown]
  - Pain [Not Recovered/Not Resolved]
  - Emotional distress [Not Recovered/Not Resolved]
  - Anxiety [Not Recovered/Not Resolved]
  - Anhedonia [Not Recovered/Not Resolved]
  - Cholelithiasis [Unknown]

NARRATIVE: CASE EVENT DATE: 20060705
